FAERS Safety Report 6184813-4 (Version None)
Quarter: 2009Q2

REPORT INFORMATION
  Report Type: 
  Country: None (occurrence: None)
  Receive Date: 20090508
  Receipt Date: 20090430
  Transmission Date: 20091009
  Serious: Yes (Death)
  Sender: FDA-Public Use
  Company Number: IT-ELI_LILLY_AND_COMPANY-IT200904007269

PATIENT
  Age: 32 Year
  Sex: Male

DRUGS (4)
  1. ZYPREXA [Suspect]
     Dosage: 1 D/F, UNK
     Route: 030
     Dates: start: 20090425
  2. ENTUMIN [Concomitant]
     Dosage: 2 D/F, UNK
     Dates: start: 20090425, end: 20090425
  3. TAVOR [Concomitant]
     Dosage: UNK, UNK
     Route: 048
     Dates: start: 20090425, end: 20090425
  4. TAVOR [Concomitant]
     Dosage: 1 D/F, UNK
     Route: 030
     Dates: start: 20090426, end: 20090426

REACTIONS (1)
  - PULMONARY OEDEMA [None]
